FAERS Safety Report 9459040 (Version 1)
Quarter: 2013Q3

REPORT INFORMATION
  Report Type: Spontaneous
  Country: US (occurrence: US)
  Receive Date: 20130814
  Receipt Date: 20130814
  Transmission Date: 20140515
  Serious: No
  Sender: FDA-Public Use
  Company Number: US201208004044

PATIENT
  Age: 66 Year
  Sex: Female

DRUGS (2)
  1. BYDUREON [Suspect]
     Indication: TYPE 2 DIABETES MELLITUS
     Route: 058
  2. BYDUREON [Suspect]
     Indication: TYPE 2 DIABETES MELLITUS
     Route: 058
     Dates: start: 201207

REACTIONS (5)
  - Injection site haemorrhage [Unknown]
  - Injection site nodule [Not Recovered/Not Resolved]
  - Injection site pain [Not Recovered/Not Resolved]
  - Diarrhoea [Recovered/Resolved]
  - Accidental overdose [Unknown]
